FAERS Safety Report 6835754-8 (Version None)
Quarter: 2010Q3

REPORT INFORMATION
  Report Type: 
  Country: None (occurrence: None)
  Receive Date: 20100713
  Receipt Date: 20100630
  Transmission Date: 20110219
  Serious: Yes (Hospitalization)
  Sender: FDA-Public Use
  Company Number: DE-AMGEN-QUU413042

PATIENT
  Sex: Female
  Weight: 72 kg

DRUGS (7)
  1. ENBREL [Suspect]
     Indication: RHEUMATOID ARTHRITIS
     Route: 058
     Dates: start: 20091028, end: 20100301
  2. AMLODIPINE [Concomitant]
     Dosage: UNKNOWN
  3. FUROSEMIDE [Concomitant]
     Dosage: UNKNOWN
  4. ALLOPURINOL [Concomitant]
     Dosage: UNKNOWN
  5. SODIUM [Concomitant]
     Dosage: UNKNOWN
  6. OLMESARTAN MEDOXOMIL [Concomitant]
     Dosage: UNKNOWN
  7. MOXONIDINE [Concomitant]
     Dosage: UNKNOWN

REACTIONS (4)
  - CHILLS [None]
  - OEDEMA PERIPHERAL [None]
  - SARCOIDOSIS [None]
  - URINARY INCONTINENCE [None]
